FAERS Safety Report 6176002-4 (Version None)
Quarter: 2009Q2

REPORT INFORMATION
  Report Type: 
  Country: None (occurrence: None)
  Receive Date: 20090501
  Receipt Date: 20090421
  Transmission Date: 20091009
  Serious: Yes (Other)
  Sender: FDA-Public Use
  Company Number: DE-ROCHE-625033

PATIENT
  Sex: Female
  Weight: 87.9 kg

DRUGS (17)
  1. METHOXY POLYETHYLENE GLYCOL-EPOETIN BETA [Suspect]
     Dosage: DOSAGE FORM REPORTED AS SYRINGE.
     Route: 058
     Dates: start: 20081203
  2. METHOXY POLYETHYLENE GLYCOL-EPOETIN BETA [Suspect]
     Route: 058
     Dates: start: 20090112
  3. METHOXY POLYETHYLENE GLYCOL-EPOETIN BETA [Suspect]
     Route: 058
     Dates: start: 20090204
  4. METHOXY POLYETHYLENE GLYCOL-EPOETIN BETA [Suspect]
     Route: 058
     Dates: start: 20090304, end: 20090401
  5. PREDNISONE [Concomitant]
     Indication: IMMUNOSUPPRESSION
     Dosage: DRUG NAME REPORTED AS PREDNISON. INDICATION REPORTED AS IMMUNOSUPPRESSION FOR KIDNEY TRANSPLANT.
     Dates: start: 20030701
  6. PROGRAF [Concomitant]
     Indication: IMMUNOSUPPRESSION
     Dosage: DRUG NAME REPORTED AS PREDNISON. INDICATION REPORTED AS IMMUNOSUPPRESSION FOR KIDNEY TRANSPLANT.
     Dates: start: 20050119
  7. METOPROLOL TARTRATE [Concomitant]
     Dates: start: 20020911
  8. BLOPRESS [Concomitant]
     Dates: start: 20050713
  9. FUROSEMID [Concomitant]
     Dates: start: 20020911
  10. LOCOL [Concomitant]
     Dates: start: 20080423
  11. ASPIRIN [Concomitant]
     Dates: start: 20020305
  12. NOVONORM [Concomitant]
     Dates: start: 20080423
  13. HAEMOPROTECT [Concomitant]
     Dosage: DRUG NAME REPORTED AS HAMOPROTECT.
     Dates: start: 20070328
  14. ALLOPURINOL [Concomitant]
     Dates: start: 20070328
  15. MAGNESIUM NOS [Concomitant]
     Dates: start: 20040811
  16. NIFEDIPINE [Concomitant]
     Dates: start: 20090112
  17. ERYPO [Concomitant]
     Dates: start: 20010815, end: 20030507

REACTIONS (2)
  - DRUG INEFFECTIVE [None]
  - NO ADVERSE EVENT [None]
